FAERS Safety Report 24620580 (Version 2)
Quarter: 2024Q4

REPORT INFORMATION
  Report Type: Spontaneous
  Country: US (occurrence: US)
  Receive Date: 20241114
  Receipt Date: 20241129
  Transmission Date: 20250114
  Serious: Yes (Other)
  Sender: TEVA
  Company Number: US-TEVA-VS-3262467

PATIENT
  Age: 59 Year
  Sex: Male

DRUGS (1)
  1. IBUPROFEN [Suspect]
     Active Substance: IBUPROFEN
     Indication: Product used for unknown indication
     Route: 048

REACTIONS (4)
  - Throat tightness [Recovered/Resolved]
  - Anaphylactic reaction [Recovered/Resolved]
  - Dyspnoea [Recovered/Resolved]
  - Vomiting [Recovered/Resolved]
